FAERS Safety Report 7556527-7 (Version None)
Quarter: 2011Q2

REPORT INFORMATION
  Report Type: 
  Country: None (occurrence: None)
  Receive Date: 20110606
  Receipt Date: 20110606
  Transmission Date: 20111010
  Serious: No
  Sender: FDA-Public Use
  Company Number: None

PATIENT
  Age: 75 Year
  Sex: Male

DRUGS (3)
  1. LOVASTATIN [Suspect]
     Dates: start: 20040101, end: 20090818
  2. NIASPAN [Suspect]
     Dates: start: 20060101, end: 20090826
  3. SINGULAIR [Suspect]
     Dates: start: 20040101, end: 20090826

REACTIONS (5)
  - LIVER INJURY [None]
  - JAUNDICE [None]
  - HEPATITIS [None]
  - CHOLESTASIS [None]
  - FIBROSIS [None]
